FAERS Safety Report 24935716 (Version 3)
Quarter: 2025Q1

REPORT INFORMATION
  Report Type: Spontaneous
  Country: US (occurrence: US)
  Receive Date: 20250206
  Receipt Date: 20250226
  Transmission Date: 20250409
  Serious: Yes (Other)
  Sender: JOHNSON AND JOHNSON
  Company Number: US-ABBVIE-6119738

PATIENT
  Sex: Female

DRUGS (3)
  1. IMBRUVICA [Suspect]
     Active Substance: IBRUTINIB
     Indication: Waldenstrom^s macroglobulinaemia
     Route: 048
     Dates: start: 202104
  2. Immunoglobulin [Concomitant]
     Indication: Product used for unknown indication
  3. BENADRYL [Concomitant]
     Active Substance: DIPHENHYDRAMINE HYDROCHLORIDE
     Indication: Product used for unknown indication

REACTIONS (9)
  - Oesophageal neoplasm [Unknown]
  - Renal neoplasm [Unknown]
  - Abdominal neoplasm [Unknown]
  - Ureteral neoplasm [Unknown]
  - Neoplasm [Unknown]
  - B-cell small lymphocytic lymphoma [Unknown]
  - Blood immunoglobulin M increased [Unknown]
  - Illness [Unknown]
  - Abdominal lymphadenopathy [Unknown]
